FAERS Safety Report 10989208 (Version 2)
Quarter: 2015Q2

REPORT INFORMATION
  Report Type: Spontaneous
  Country: NL (occurrence: NL)
  Receive Date: 20150406
  Receipt Date: 20150415
  Transmission Date: 20150821
  Serious: Yes (Hospitalization, Other)
  Sender: FDA-Public Use
  Company Number: NL-AUROBINDO-AUR-APL-2015-02878

PATIENT
  Age: 45 Year
  Sex: Female

DRUGS (8)
  1. ATORVASTATIN [Concomitant]
     Active Substance: ATORVASTATIN
     Indication: PRODUCT USED FOR UNKNOWN INDICATION
     Dosage: UNK
     Route: 065
  2. FUROSEMIDE. [Concomitant]
     Active Substance: FUROSEMIDE
     Indication: DIABETIC NEPHROPATHY
     Dosage: UNK
     Route: 065
  3. SEVELAMER [Interacting]
     Active Substance: SEVELAMER
     Dosage: 4.8 G AT 5 PM
     Route: 065
  4. SEVELAMER [Interacting]
     Active Substance: SEVELAMER
     Indication: DIABETIC NEPHROPATHY
     Dosage: 2.4 G AT 8AM, 12PM, 10PM
     Route: 065
  5. IPRATROPIUM [Concomitant]
     Active Substance: IPRATROPIUM
     Indication: PRODUCT USED FOR UNKNOWN INDICATION
     Dosage: UNK
     Route: 065
  6. QUETIAPINE [Suspect]
     Active Substance: QUETIAPINE
     Indication: BIPOLAR DISORDER
     Dosage: 800 MG, ONCE A DAY
     Route: 065
  7. INSULIN [Concomitant]
     Active Substance: INSULIN NOS
     Indication: DIABETIC NEPHROPATHY
     Dosage: UNK
     Route: 065
  8. IRBESARTAN. [Concomitant]
     Active Substance: IRBESARTAN
     Indication: DIABETIC NEPHROPATHY
     Dosage: UNK
     Route: 065

REACTIONS (6)
  - Drug level [Unknown]
  - Inhibitory drug interaction [Unknown]
  - Drug interaction [Unknown]
  - Diabetes mellitus inadequate control [Unknown]
  - Renal failure [Unknown]
  - Treatment failure [Unknown]
